FAERS Safety Report 6148545-0 (Version None)
Quarter: 2009Q2

REPORT INFORMATION
  Report Type: 
  Country: None (occurrence: None)
  Receive Date: 20090408
  Receipt Date: 20090401
  Transmission Date: 20091009
  Serious: Yes (Hospitalization)
  Sender: FDA-Public Use
  Company Number: US-GENENTECH-280400

PATIENT
  Sex: Female

DRUGS (9)
  1. BLINDED BEVACIZUMAB [Suspect]
     Indication: BREAST CANCER
     Dosage: UNK MG/KG, UNK
     Route: 042
     Dates: start: 20090114, end: 20090211
  2. CYCLOPHOSPHAMIDE [Suspect]
     Indication: BREAST CANCER
     Dosage: UNK MG/KG, UNK
     Route: 042
     Dates: start: 20090114, end: 20090211
  3. DOXORUBICIN HCL [Suspect]
     Indication: BREAST CANCER
     Dosage: UNK MG/KG, UNK
     Route: 042
     Dates: start: 20090114, end: 20090211
  4. PACLITAXEL [Suspect]
     Indication: BREAST CANCER
     Dosage: UNK MG/KG, UNK
     Route: 042
     Dates: start: 20090114, end: 20090211
  5. BLINDED PLACEBO [Suspect]
     Indication: BREAST CANCER
     Dosage: UNK MG/KG, UNK
     Route: 042
     Dates: start: 20090114, end: 20090211
  6. DOXORUBICIN HCL [Suspect]
     Indication: BREAST CANCER
     Dosage: 60 MG/M2, UNK
     Route: 042
     Dates: end: 20090211
  7. CYCLOPHOSPHAMIDE [Suspect]
     Indication: BREAST CANCER
     Dosage: 600 MG/M2, UNK
     Route: 042
     Dates: end: 20090211
  8. PEGFILGRASTIM [Suspect]
     Indication: DRUG USE FOR UNKNOWN INDICATION
     Dosage: 6 MG, UNK
     Route: 058
     Dates: end: 20090211
  9. PACLITAXEL [Suspect]
     Indication: BREAST CANCER
     Dosage: 80 MG/M2, DAYS1,8,15
     Route: 042
     Dates: end: 20090211

REACTIONS (3)
  - ANAEMIA [None]
  - FEBRILE NEUTROPENIA [None]
  - GASTROINTESTINAL DISORDER [None]
